FAERS Safety Report 17718519 (Version 6)
Quarter: 2021Q1

REPORT INFORMATION
  Report Type: Spontaneous
  Country: US (occurrence: US)
  Receive Date: 20200428
  Receipt Date: 20210204
  Transmission Date: 20210419
  Serious: Yes (Other)
  Sender: FDA-Public Use
  Company Number: US-PFIZER INC-2020170693

PATIENT
  Age: 46 Year
  Sex: Male

DRUGS (1)
  1. SUTENT [Suspect]
     Active Substance: SUNITINIB MALATE
     Indication: RENAL CANCER
     Dosage: 50 MG, CYCLIC (ONCE DAILY. TAKE FOR 2 WEEKS THEN TAKE 1 WEEK OFF)
     Route: 048

REACTIONS (2)
  - Renal disorder [Recovered/Resolved]
  - Dizziness [Unknown]
